FAERS Safety Report 19707463 (Version 3)
Quarter: 2021Q3

REPORT INFORMATION
  Report Type: Spontaneous
  Country: US (occurrence: US)
  Receive Date: 20210817
  Receipt Date: 20210929
  Transmission Date: 20211014
  Serious: No
  Sender: FDA-Public Use
  Company Number: US-PFIZER INC-202100998897

PATIENT
  Age: 37 Year
  Sex: Female
  Weight: 107.5 kg

DRUGS (2)
  1. RUXIENCE [Suspect]
     Active Substance: RITUXIMAB-PVVR
     Dosage: 500 MG, (500 MG Q 2 WEEKS X 2 THEN 500 MG Q 24 WKS)
  2. RUXIENCE [Suspect]
     Active Substance: RITUXIMAB-PVVR
     Dosage: 821 MG, (821 MG Q WEEKLY FOR 4 WEEKS)

REACTIONS (4)
  - Feeling abnormal [Unknown]
  - Pharyngeal paraesthesia [Unknown]
  - Flushing [Unknown]
  - Body temperature increased [Unknown]
